FAERS Safety Report 16305006 (Version 2)
Quarter: 2019Q2

REPORT INFORMATION
  Report Type: Spontaneous
  Country: US (occurrence: US)
  Receive Date: 20190513
  Receipt Date: 20190523
  Transmission Date: 20190711
  Serious: Yes (Other)
  Sender: FDA-Public Use
  Company Number: US-AKORN PHARMACEUTICALS-2019AKN00975

PATIENT
  Sex: Male
  Weight: 68.03 kg

DRUGS (3)
  1. ADDERALL [Concomitant]
     Active Substance: AMPHETAMINE ASPARTATE\AMPHETAMINE SULFATE\DEXTROAMPHETAMINE SACCHARATE\DEXTROAMPHETAMINE SULFATE
  2. CLARAVIS [Suspect]
     Active Substance: ISOTRETINOIN
     Indication: ACNE
     Dosage: 40 UNK, 1X/DAY
     Dates: start: 20181211
  3. MYORISAN [Suspect]
     Active Substance: ISOTRETINOIN
     Indication: ACNE
     Dosage: 30 UNK, 2X/DAY
     Dates: start: 20181108, end: 20190419

REACTIONS (4)
  - Hallucination [Recovered/Resolved]
  - Anxiety [Recovered/Resolved]
  - Mental disorder [Recovered/Resolved]
  - Abnormal behaviour [Recovered/Resolved]
